FAERS Safety Report 18526674 (Version 2)
Quarter: 2020Q4

REPORT INFORMATION
  Report Type: Spontaneous
  Country: US (occurrence: US)
  Receive Date: 20201120
  Receipt Date: 20201204
  Transmission Date: 20210114
  Serious: No
  Sender: FDA-Public Use
  Company Number: US-TORRENT-00010540

PATIENT
  Sex: Female

DRUGS (3)
  1. ZOCOR [Concomitant]
     Active Substance: SIMVASTATIN
     Indication: HYPERLIPIDAEMIA
     Dosage: AT BED TIME
  2. ANAGRELIDE HYDROCHLORIDE CAPSULES [Suspect]
     Active Substance: ANAGRELIDE HYDROCHLORIDE
     Indication: PRODUCT USED FOR UNKNOWN INDICATION
     Dosage: UNKNOWN
     Dates: start: 202010
  3. ANAGRELIDE HYDROCHLORIDE. [Concomitant]
     Active Substance: ANAGRELIDE HYDROCHLORIDE
     Indication: PRODUCT USED FOR UNKNOWN INDICATION
     Dosage: FROM PAST 30 YEARS

REACTIONS (4)
  - Product odour abnormal [Unknown]
  - Product taste abnormal [Unknown]
  - Product quality issue [Unknown]
  - No adverse event [Unknown]

NARRATIVE: CASE EVENT DATE: 2020
